FAERS Safety Report 5212998-2 (Version None)
Quarter: 2007Q1

REPORT INFORMATION
  Report Type: 
  Country: None (occurrence: None)
  Receive Date: 20070117
  Receipt Date: 20060731
  Transmission Date: 20070707
  Serious: Yes (Death)
  Sender: FDA-Public Use
  Company Number: 0607-490

PATIENT
  Age: 2 Week
  Sex: Male
  Weight: 1.07 kg

DRUGS (1)
  1. CUROSURF [Suspect]
     Dosage: 200 MG/KG ; 100 MG/KG

REACTIONS (16)
  - ADRENAL DISORDER [None]
  - CEREBRAL HAEMORRHAGE [None]
  - DISSEMINATED INTRAVASCULAR COAGULATION [None]
  - FLATULENCE [None]
  - GENERAL PHYSICAL HEALTH DETERIORATION [None]
  - GENERALISED OEDEMA [None]
  - HYPOTENSION [None]
  - ISCHAEMIA [None]
  - MALAISE [None]
  - MYOCARDIAL INFARCTION [None]
  - NEONATAL RESPIRATORY DISTRESS SYNDROME [None]
  - NEONATAL RESPIRATORY FAILURE [None]
  - NO THERAPEUTIC RESPONSE [None]
  - RENAL CORTICAL NECROSIS [None]
  - RENAL FAILURE NEONATAL [None]
  - WEIGHT INCREASED [None]
